FAERS Safety Report 25263014 (Version 1)
Quarter: 2025Q2

REPORT INFORMATION
  Report Type: Spontaneous
  Country: US (occurrence: US)
  Receive Date: 20250502
  Receipt Date: 20250502
  Transmission Date: 20250716
  Serious: Yes (Life-Threatening, Hospitalization)
  Sender: ACCORD
  Company Number: US-MLMSERVICE-20250414-PI480704-00140-1

PATIENT
  Sex: Female

DRUGS (4)
  1. CISPLATIN [Suspect]
     Active Substance: CISPLATIN
     Indication: Atypical teratoid/rhabdoid tumour of CNS
  2. ETOPOSIDE [Suspect]
     Active Substance: ETOPOSIDE
     Indication: Atypical teratoid/rhabdoid tumour of CNS
  3. CYCLOPHOSPHAMIDE [Suspect]
     Active Substance: CYCLOPHOSPHAMIDE
     Indication: Atypical teratoid/rhabdoid tumour of CNS
  4. VINCRISTINE [Suspect]
     Active Substance: VINCRISTINE
     Indication: Atypical teratoid/rhabdoid tumour of CNS

REACTIONS (5)
  - Pneumonia pseudomonal [Unknown]
  - Pulmonary hypertension [Unknown]
  - Respiratory failure [Unknown]
  - Cardio-respiratory distress [Unknown]
  - Off label use [Unknown]
